FAERS Safety Report 6793577-2 (Version None)
Quarter: 2010Q2

REPORT INFORMATION
  Report Type: 
  Country: None (occurrence: None)
  Receive Date: 20100624
  Receipt Date: 20090116
  Transmission Date: 20101027
  Serious: No
  Sender: FDA-Public Use
  Company Number: US-PFIZER INC-2008152260

PATIENT
  Sex: Female
  Weight: 103 kg

DRUGS (4)
  1. DEPO-PROVERA [Suspect]
     Indication: CONTRACEPTION
     Dosage: 150 MG EVERY MONTH
     Route: 058
     Dates: start: 20081112
  2. ADVAIR DISKUS 100/50 [Concomitant]
     Dosage: UNK
  3. VERAMYST [Concomitant]
     Dosage: UNK
  4. LEXAPRO [Concomitant]
     Dosage: UNK

REACTIONS (4)
  - INJECTION SITE PAIN [None]
  - INJECTION SITE URTICARIA [None]
  - INJECTION SITE WARMTH [None]
  - PAIN IN EXTREMITY [None]
